FAERS Safety Report 9908156 (Version 23)
Quarter: 2015Q4

REPORT INFORMATION
  Report Type: Report from Study
  Country: CA (occurrence: CA)
  Receive Date: 20140219
  Receipt Date: 20151208
  Transmission Date: 20160305
  Serious: Yes (Hospitalization, Other)
  Sender: FDA-Public Use
  Company Number: CA-ROCHE-1185940

PATIENT
  Age: 51 Year
  Sex: Female
  Weight: 70 kg

DRUGS (14)
  1. NAPROSYN [Suspect]
     Active Substance: NAPROXEN
     Indication: PRODUCT USED FOR UNKNOWN INDICATION
     Route: 065
  2. ACTEMRA [Suspect]
     Active Substance: TOCILIZUMAB
     Indication: RHEUMATOID ARTHRITIS
     Route: 042
     Dates: start: 20110901
  3. ACTEMRA [Suspect]
     Active Substance: TOCILIZUMAB
     Route: 042
     Dates: start: 20150216
  4. IMURAN [Concomitant]
     Active Substance: AZATHIOPRINE
  5. VITAMIN C [Concomitant]
     Active Substance: ASCORBIC ACID
  6. LOSEC [Concomitant]
     Active Substance: OMEPRAZOLE
  7. TYLENOL [Concomitant]
     Active Substance: ACETAMINOPHEN
     Route: 065
  8. ACTEMRA [Suspect]
     Active Substance: TOCILIZUMAB
     Route: 042
     Dates: start: 20150112
  9. LUTEIN [Concomitant]
     Active Substance: LUTEIN
  10. BETA CAROTENE [Concomitant]
  11. VITAMIN E [Concomitant]
     Active Substance: .ALPHA.-TOCOPHEROL
  12. FOLIC ACID. [Concomitant]
     Active Substance: FOLIC ACID
  13. ACTEMRA [Suspect]
     Active Substance: TOCILIZUMAB
     Route: 042
     Dates: start: 20120730
  14. EMTEC-30 [Concomitant]

REACTIONS (21)
  - Ingrowing nail [Not Recovered/Not Resolved]
  - Pain [Unknown]
  - Hernia [Unknown]
  - Arthropathy [Not Recovered/Not Resolved]
  - Nasopharyngitis [Recovering/Resolving]
  - Heart rate decreased [Unknown]
  - Blood pressure increased [Unknown]
  - Cough [Recovered/Resolved]
  - Nasopharyngitis [Recovered/Resolved]
  - Oropharyngeal pain [Recovered/Resolved]
  - Joint swelling [Unknown]
  - Upper respiratory tract infection [Recovering/Resolving]
  - Headache [Recovered/Resolved]
  - Malaise [Not Recovered/Not Resolved]
  - Localised infection [Recovered/Resolved]
  - Conjunctivitis [Recovered/Resolved with Sequelae]
  - Influenza [Recovering/Resolving]
  - Arthropod bite [Recovering/Resolving]
  - Infusion related reaction [Unknown]
  - Large intestinal obstruction [Recovered/Resolved]
  - Nasopharyngitis [Unknown]

NARRATIVE: CASE EVENT DATE: 20121218
